FAERS Safety Report 8254697-9 (Version None)
Quarter: 2012Q2

REPORT INFORMATION
  Report Type: 
  Country: None (occurrence: None)
  Receive Date: 20120403
  Receipt Date: 20120326
  Transmission Date: 20120825
  Serious: Yes (Hospitalization)
  Sender: FDA-Public Use
  Company Number: US-BAYER-2011-040539

PATIENT
  Age: 19 Year
  Sex: Female
  Weight: 84.807 kg

DRUGS (6)
  1. YASMIN [Suspect]
     Indication: DYSMENORRHOEA
     Dosage: UNK
     Route: 048
     Dates: start: 20050628, end: 20051212
  2. LORTAB [Concomitant]
     Dosage: UNK
     Dates: start: 20051211
  3. YASMIN [Suspect]
     Dosage: UNK
     Route: 048
     Dates: start: 20060701
  4. LUNESTA [Concomitant]
     Dosage: 2 MG, UNK
     Route: 048
     Dates: start: 20051018
  5. IBUPROFEN [Concomitant]
     Indication: PAIN
     Dosage: 800 MG, UNK
     Route: 048
     Dates: start: 20051211, end: 20110201
  6. FLEXERIL [Concomitant]
     Dosage: UNK
     Dates: start: 20051211

REACTIONS (11)
  - VARICOSE VEIN [None]
  - VARICOSE VEINS PELVIC [None]
  - ANXIETY [None]
  - FEELING ABNORMAL [None]
  - DEEP VEIN THROMBOSIS [None]
  - PAIN [None]
  - SWELLING [None]
  - VENOUS VALVE RUPTURED [None]
  - INJURY [None]
  - EMOTIONAL DISTRESS [None]
  - OEDEMA PERIPHERAL [None]
